FAERS Safety Report 5483337-7 (Version None)
Quarter: 2007Q4

REPORT INFORMATION
  Report Type: 
  Country: None (occurrence: None)
  Receive Date: 20071012
  Receipt Date: 20071006
  Transmission Date: 20080405
  Serious: Yes (Life-Threatening, Hospitalization)
  Sender: FDA-Public Use
  Company Number: PHHO2007AT16475

PATIENT
  Sex: Male

DRUGS (9)
  1. LEPONEX [Suspect]
     Indication: SCHIZOPHRENIA
     Dosage: UNK, UNK
     Dates: start: 20070716
  2. LEPONEX [Suspect]
     Dates: start: 20070721, end: 20070721
  3. LEPONEX [Suspect]
     Dates: start: 20070722, end: 20070722
  4. LEPONEX [Suspect]
     Dates: start: 20070723, end: 20070724
  5. LEPONEX [Suspect]
     Dates: start: 20070725, end: 20070725
  6. LEPONEX [Suspect]
     Dates: start: 20070726, end: 20070731
  7. FLUANXOL [Concomitant]
  8. DEPAKENE [Concomitant]
  9. PSYCHOPAX [Concomitant]

REACTIONS (9)
  - CARDIAC DISORDER [None]
  - CARDIAC ENZYMES INCREASED [None]
  - CHILLS [None]
  - DYSPNOEA EXERTIONAL [None]
  - EXTRAPYRAMIDAL DISORDER [None]
  - LYMPHOPENIA [None]
  - MALAISE [None]
  - SALIVARY HYPERSECRETION [None]
  - TREMOR [None]
